FAERS Safety Report 15940838 (Version 3)
Quarter: 2020Q1

REPORT INFORMATION
  Report Type: Spontaneous
  Country: US (occurrence: US)
  Receive Date: 20190208
  Receipt Date: 20200304
  Transmission Date: 20200409
  Serious: Yes (Other)
  Sender: FDA-Public Use
  Company Number: US-ASTRAZENECA-2018SF65261

PATIENT
  Age: 76 Year
  Sex: Female
  Weight: 56.7 kg

DRUGS (27)
  1. RANITIDINE. [Suspect]
     Active Substance: RANITIDINE
     Indication: GASTROOESOPHAGEAL REFLUX DISEASE
     Route: 065
     Dates: start: 2017
  2. FUROSEMIDE. [Concomitant]
     Active Substance: FUROSEMIDE
     Indication: FLUID BALANCE ASSESSMENT
     Route: 065
     Dates: start: 2017
  3. PROAIR HFA [Concomitant]
     Active Substance: ALBUTEROL SULFATE
  4. REGLAN [Concomitant]
     Active Substance: METOCLOPRAMIDE HYDROCHLORIDE
  5. NEOMYCIN. [Concomitant]
     Active Substance: NEOMYCIN
  6. ALBUTEROL. [Concomitant]
     Active Substance: ALBUTEROL
  7. AMOXICILLIN. [Concomitant]
     Active Substance: AMOXICILLIN
     Indication: SINUSITIS
     Route: 065
     Dates: start: 2018, end: 2019
  8. NAPROXEN. [Concomitant]
     Active Substance: NAPROXEN
     Indication: NEURALGIA
     Route: 065
     Dates: start: 2015
  9. NEXIUM [Suspect]
     Active Substance: ESOMEPRAZOLE MAGNESIUM
     Indication: GASTROOESOPHAGEAL REFLUX DISEASE
     Route: 065
     Dates: start: 2003, end: 2016
  10. IRON [Concomitant]
     Active Substance: IRON
     Indication: BLOOD IRON ABNORMAL
     Route: 065
     Dates: start: 2016
  11. NEXIUM [Suspect]
     Active Substance: ESOMEPRAZOLE MAGNESIUM
     Indication: GASTROOESOPHAGEAL REFLUX DISEASE
     Dosage: GENERIC
     Route: 065
  12. DIOVAN [Concomitant]
     Active Substance: VALSARTAN
     Indication: HYPERTENSION
     Route: 065
     Dates: start: 2009
  13. NEXIUM [Suspect]
     Active Substance: ESOMEPRAZOLE MAGNESIUM
     Indication: GASTROOESOPHAGEAL REFLUX DISEASE
     Route: 048
     Dates: start: 2016, end: 2018
  14. CEFDINIR. [Concomitant]
     Active Substance: CEFDINIR
  15. NAPROXEN. [Concomitant]
     Active Substance: NAPROXEN
     Indication: CRANIAL NERVE INFECTION
     Route: 065
     Dates: start: 2015
  16. LISINOPRIL. [Concomitant]
     Active Substance: LISINOPRIL
     Indication: BLOOD PRESSURE MEASUREMENT
     Route: 065
     Dates: start: 2009
  17. DOXYCYCLINE. [Concomitant]
     Active Substance: DOXYCYCLINE
     Indication: HYPERTENSION
     Route: 065
  18. NEXIUM [Suspect]
     Active Substance: ESOMEPRAZOLE MAGNESIUM
     Indication: GASTROOESOPHAGEAL REFLUX DISEASE
     Route: 048
     Dates: start: 20080321
  19. NEXIUM [Suspect]
     Active Substance: ESOMEPRAZOLE MAGNESIUM
     Indication: GASTROOESOPHAGEAL REFLUX DISEASE
     Dosage: GENERIC
     Route: 065
     Dates: start: 2016, end: 2018
  20. TYLENOL [Concomitant]
     Active Substance: ACETAMINOPHEN
  21. LEVAQUIN [Concomitant]
     Active Substance: LEVOFLOXACIN
     Route: 065
  22. SIMVASTATIN. [Concomitant]
     Active Substance: SIMVASTATIN
     Indication: CARDIAC DISORDER
     Route: 065
  23. GABAPENTIN. [Concomitant]
     Active Substance: GABAPENTIN
  24. CLONAZEPAM. [Concomitant]
     Active Substance: CLONAZEPAM
  25. PAROXETINE. [Concomitant]
     Active Substance: PAROXETINE
  26. COMBIVENT [Concomitant]
     Active Substance: ALBUTEROL SULFATE\IPRATROPIUM BROMIDE
  27. VALERIAN [Concomitant]
     Active Substance: VALERIAN
     Indication: ROUTINE HEALTH MAINTENANCE
     Route: 065
     Dates: start: 2016

REACTIONS (5)
  - Renal injury [Unknown]
  - Chronic kidney disease [Unknown]
  - Renal failure [Unknown]
  - Rebound acid hypersecretion [Unknown]
  - Nephropathy [Not Recovered/Not Resolved]

NARRATIVE: CASE EVENT DATE: 2017
